FAERS Safety Report 4784558-9 (Version None)
Quarter: 2005Q3

REPORT INFORMATION
  Report Type: 
  Country: None (occurrence: None)
  Receive Date: 20050928
  Receipt Date: 20050916
  Transmission Date: 20060218
  Serious: Yes (Hospitalization)
  Sender: FDA-Public Use
  Company Number: 05-NIP00083

PATIENT
  Age: 33 Year
  Sex: Female
  Weight: 63.1 kg

DRUGS (1)
  1. NIPENT [Suspect]

REACTIONS (4)
  - COMPLICATIONS OF TRANSPLANT SURGERY [None]
  - DELAYED ENGRAFTMENT [None]
  - NEUTROPHIL COUNT DECREASED [None]
  - WHITE BLOOD CELL COUNT DECREASED [None]
